FAERS Safety Report 8119647-4 (Version None)
Quarter: 2012Q1

REPORT INFORMATION
  Report Type: 
  Country: None (occurrence: None)
  Receive Date: 20120207
  Receipt Date: 20120130
  Transmission Date: 20120608
  Serious: Yes (Hospitalization)
  Sender: FDA-Public Use
  Company Number: JP-MERCK-1111USA01683

PATIENT
  Age: 70 Year
  Sex: Female

DRUGS (2)
  1. FOSAMAX [Suspect]
     Indication: OSTEOPOROSIS PROPHYLAXIS
     Route: 048
     Dates: start: 20090629, end: 20100107
  2. FOSAMAX [Suspect]
     Route: 048
     Dates: start: 20080527, end: 20090601

REACTIONS (2)
  - OSTEOMYELITIS [None]
  - TOOTH DISORDER [None]
